FAERS Safety Report 8107534 (Version 4)
Quarter: 2012Q4

REPORT INFORMATION
  Report Type: 
  Country: US (occurrence: US)
  Receive Date: 20110825
  Receipt Date: 20121001
  Transmission Date: 20130627
  Serious: Yes (Hospitalization)
  Sender: FDA-Public Use
  Company Number: US-ASTRAZENECA-2010SE61359

PATIENT
  Age: 72 Year
  Sex: Female

DRUGS (2)
  1. NEXIUM [Suspect]
     Route: 048
  2. UNSPECIFIED INGREDIENT [Suspect]
     Route: 065

REACTIONS (13)
  - Fall [Unknown]
  - Joint injury [Unknown]
  - Infection [Unknown]
  - Deafness unilateral [Unknown]
  - Diabetes mellitus [Unknown]
  - Pain in extremity [Unknown]
  - Throat irritation [Unknown]
  - Arthropathy [Unknown]
  - Malaise [Unknown]
  - Malaise [Unknown]
  - Condition aggravated [Unknown]
  - Abdominal pain upper [Unknown]
  - Drug dose omission [Unknown]
